FAERS Safety Report 6833286-4 (Version None)
Quarter: 2010Q3

REPORT INFORMATION
  Report Type: 
  Country: None (occurrence: None)
  Receive Date: 20100712
  Receipt Date: 20100604
  Transmission Date: 20110219
  Serious: No
  Sender: FDA-Public Use
  Company Number: US-BIOGENIDEC-2010BI019133

PATIENT
  Sex: Female

DRUGS (1)
  1. TYSABRI [Suspect]
     Indication: MULTIPLE SCLEROSIS
     Route: 042
     Dates: start: 20090429

REACTIONS (7)
  - BACK INJURY [None]
  - BLOOD GLUCOSE INCREASED [None]
  - EAR INFECTION [None]
  - FALL [None]
  - MULTIPLE SCLEROSIS [None]
  - TEMPERATURE INTOLERANCE [None]
  - VITAMIN D DECREASED [None]
